FAERS Safety Report 23500305 (Version 2)
Quarter: 2024Q1

REPORT INFORMATION
  Report Type: Spontaneous
  Country: US (occurrence: US)
  Receive Date: 20240208
  Receipt Date: 20240212
  Transmission Date: 20240409
  Serious: Yes (Disabling, Other)
  Sender: FDA-Public Use
  Company Number: US-SA-2022SA425418

PATIENT
  Age: 76 Year
  Sex: Male

DRUGS (2)
  1. TALC [Suspect]
     Active Substance: TALC
     Indication: Product used for unknown indication
  2. DIMETHICONE [Suspect]
     Active Substance: DIMETHICONE
     Indication: Product used for unknown indication
     Dosage: DOSE DESCRIPTION : UNK
     Route: 065

REACTIONS (6)
  - Pleural mesothelioma malignant [Unknown]
  - Physical disability [Unknown]
  - Pain [Unknown]
  - Emotional distress [Unknown]
  - Anhedonia [Unknown]
  - Exposure to chemical pollution [Unknown]
